FAERS Safety Report 23226298 (Version 3)
Quarter: 2024Q1

REPORT INFORMATION
  Report Type: Spontaneous
  Country: GB (occurrence: GB)
  Receive Date: 20231124
  Receipt Date: 20240116
  Transmission Date: 20240410
  Serious: Yes (Other)
  Sender: FDA-Public Use
  Company Number: GB-PFIZER INC-8-98357-001N

PATIENT
  Age: 64 Year
  Sex: Male

DRUGS (3)
  1. METHOTREXATE SODIUM [Suspect]
     Active Substance: METHOTREXATE SODIUM
     Indication: Rheumatoid arthritis
     Dosage: MAXIMUM DOSE OF 20 MG WEEKLY
     Route: 048
  2. FOLIC ACID [Concomitant]
     Active Substance: FOLIC ACID
     Route: 065
  3. SULFASALAZINE [Concomitant]
     Active Substance: SULFASALAZINE

REACTIONS (1)
  - Malignant melanoma [Unknown]
